FAERS Safety Report 18009189 (Version 1)
Quarter: 2020Q3

REPORT INFORMATION
  Report Type: Spontaneous
  Country: US (occurrence: US)
  Receive Date: 20200710
  Receipt Date: 20200710
  Transmission Date: 20201103
  Serious: Yes (Other)
  Sender: FDA-Public Use
  Company Number: US-SAOL THERAPEUTICS-2020SAO00029

PATIENT
  Age: 46 Year
  Sex: Male

DRUGS (2)
  1. BACLOFEN. [Suspect]
     Active Substance: BACLOFEN
     Dosage: DECREASED IT 20 BY 20 BY 20
     Route: 037
     Dates: end: 20191217
  2. BACLOFEN. [Suspect]
     Active Substance: BACLOFEN
     Indication: MUSCLE SPASTICITY
     Dosage: UNK; PRIOR TO PUMP REMOVAL WAS DECREASED ^20 BY 20 BY 20^
     Route: 037
     Dates: start: 20170905

REACTIONS (7)
  - Muscle tightness [Recovered/Resolved]
  - Tremor [Unknown]
  - Paraesthesia [Recovering/Resolving]
  - Muscle spasms [Unknown]
  - Asthenia [Unknown]
  - Muscle spasticity [Recovering/Resolving]
  - Pain in extremity [Recovering/Resolving]

NARRATIVE: CASE EVENT DATE: 201712
